FAERS Safety Report 6527975-9 (Version None)
Quarter: 2009Q4

REPORT INFORMATION
  Report Type: 
  Country: None (occurrence: None)
  Receive Date: 20091222
  Receipt Date: 20090923
  Transmission Date: 20100525
  Serious: No
  Sender: FDA-Public Use
  Company Number: ALL1-2009-02886

PATIENT
  Age: 44 Year
  Sex: Female

DRUGS (7)
  1. VYVANSE [Suspect]
     Indication: ATTENTION DEFICIT/HYPERACTIVITY DISORDER
     Dosage: SEE IMAGE
     Route: 048
     Dates: start: 20070101, end: 20070101
  2. VYVANSE [Suspect]
     Indication: ATTENTION DEFICIT/HYPERACTIVITY DISORDER
     Dosage: SEE IMAGE
     Route: 048
     Dates: start: 20070101, end: 20070101
  3. VYVANSE [Suspect]
     Indication: ATTENTION DEFICIT/HYPERACTIVITY DISORDER
     Dosage: SEE IMAGE
     Route: 048
     Dates: start: 20070101, end: 20080101
  4. VYVANSE [Suspect]
     Indication: ATTENTION DEFICIT/HYPERACTIVITY DISORDER
     Dosage: SEE IMAGE
     Route: 048
     Dates: start: 20080101, end: 20090922
  5. RISPERDAL [Concomitant]
  6. ABILIFY [Concomitant]
  7. LEVOTHYROXINE SODIUM [Concomitant]

REACTIONS (7)
  - ANXIETY [None]
  - BLOOD CHOLESTEROL INCREASED [None]
  - DEPRESSION [None]
  - DISTURBANCE IN ATTENTION [None]
  - DRUG TOLERANCE [None]
  - OVERDOSE [None]
  - THERAPEUTIC RESPONSE UNEXPECTED [None]
